FAERS Safety Report 6832634-9 (Version None)
Quarter: 2010Q3

REPORT INFORMATION
  Report Type: 
  Country: None (occurrence: None)
  Receive Date: 20100712
  Receipt Date: 20070315
  Transmission Date: 20110219
  Serious: No
  Sender: FDA-Public Use
  Company Number: US-PFIZER INC-2007021429

PATIENT
  Sex: Female
  Weight: 58.97 kg

DRUGS (5)
  1. CHANTIX [Suspect]
     Indication: SMOKING CESSATION THERAPY
     Dates: start: 20070101
  2. SOMA [Concomitant]
     Indication: BACK INJURY
  3. ATIVAN [Concomitant]
  4. LORTAB [Concomitant]
     Indication: PAIN
  5. CARDIAC THERAPY [Concomitant]

REACTIONS (1)
  - DRUG INEFFECTIVE [None]
